FAERS Safety Report 5844890-4 (Version None)
Quarter: 2008Q3

REPORT INFORMATION
  Report Type: 
  Country: None (occurrence: None)
  Receive Date: 20080812
  Receipt Date: 20080808
  Transmission Date: 20090109
  Serious: Yes (Disabling)
  Sender: FDA-Public Use
  Company Number: 2008BI017352

PATIENT
  Age: 37 Year
  Sex: Male

DRUGS (2)
  1. TYSABRI [Suspect]
     Indication: MULTIPLE SCLEROSIS
     Dosage: 300 MG;QM;IV
     Route: 042
     Dates: start: 20070117, end: 20080627
  2. METHYLPREDNISOLONE [Concomitant]

REACTIONS (6)
  - BRAIN OEDEMA [None]
  - DEPRESSION [None]
  - MYOCLONUS [None]
  - PROGRESSIVE MULTIFOCAL LEUKOENCEPHALOPATHY [None]
  - SIMPLE PARTIAL SEIZURES [None]
  - THERAPEUTIC RESPONSE DECREASED [None]
